FAERS Safety Report 8357522-0 (Version None)
Quarter: 2012Q2

REPORT INFORMATION
  Report Type: 
  Country: None (occurrence: None)
  Receive Date: 20120514
  Receipt Date: 20120502
  Transmission Date: 20120825
  Serious: Yes (Hospitalization)
  Sender: FDA-Public Use
  Company Number: US-ACTELION-A-NJ2012-65208

PATIENT

DRUGS (5)
  1. TRACLEER [Suspect]
     Indication: PULMONARY ARTERIAL HYPERTENSION
     Dosage: UNK
     Route: 048
     Dates: start: 20100803
  2. OXYGEN [Concomitant]
  3. VENTAVIS [Concomitant]
     Indication: PULMONARY ARTERIAL HYPERTENSION
     Dosage: UNK
     Dates: start: 20110311
  4. TYVASO [Concomitant]
  5. CALCIUM CHANNEL BLOCKERS [Concomitant]

REACTIONS (6)
  - FLUID RETENTION [None]
  - ASCITES [None]
  - DIZZINESS [None]
  - OEDEMA [None]
  - WHEEZING [None]
  - CONSTIPATION [None]
